FAERS Safety Report 8308021-3 (Version None)
Quarter: 2012Q2

REPORT INFORMATION
  Report Type: 
  Country: None (occurrence: None)
  Receive Date: 20120424
  Receipt Date: 20120417
  Transmission Date: 20120825
  Serious: Yes (Other)
  Sender: FDA-Public Use
  Company Number: US-US-EMD SERONO, INC.-232858K07USA

PATIENT
  Sex: Female

DRUGS (9)
  1. ANTIBIOTICS [Concomitant]
     Indication: UPPER RESPIRATORY TRACT INFECTION
     Dates: start: 20070201
  2. CYMBALTA [Concomitant]
     Indication: NEURALGIA
  3. REBIF [Suspect]
     Indication: MULTIPLE SCLEROSIS
     Route: 058
     Dates: start: 20050418, end: 20070301
  4. RELIV [Concomitant]
     Indication: PRODUCT USED FOR UNKNOWN INDICATION
  5. LASIX [Concomitant]
     Indication: OEDEMA PERIPHERAL
  6. NEURONTIN [Concomitant]
     Indication: NEURALGIA
  7. KLONOPIN [Concomitant]
     Indication: LIMB DISCOMFORT
  8. REBIF [Suspect]
     Dates: start: 20070301
  9. BACLOFEN [Concomitant]
     Indication: MUSCLE SPASMS

REACTIONS (1)
  - BILIARY CIRRHOSIS PRIMARY [None]
